FAERS Safety Report 18700874 (Version 1)
Quarter: 2021Q1

REPORT INFORMATION
  Report Type: Report from Study
  Country: TW (occurrence: TW)
  Receive Date: 20210105
  Receipt Date: 20210105
  Transmission Date: 20210419
  Serious: Yes (Other)
  Sender: FDA-Public Use
  Company Number: TW-JNJFOC-20201253758

PATIENT
  Age: 45 Year
  Sex: Female
  Weight: 53 kg

DRUGS (9)
  1. ESCITALOPRAM [Concomitant]
     Active Substance: ESCITALOPRAM OXALATE
     Route: 048
     Dates: start: 20170628
  2. FLURBIPROFEN. [Concomitant]
     Active Substance: FLURBIPROFEN
     Route: 061
     Dates: start: 20190215
  3. MEPHENOXALONE [Concomitant]
     Active Substance: MEPHENOXALONE
     Route: 048
     Dates: start: 20200113
  4. DICLOFENAC [Concomitant]
     Active Substance: DICLOFENAC
     Route: 048
     Dates: start: 20190916
  5. MECOBALAMIN [Concomitant]
     Active Substance: METHYLCOBALAMIN
     Route: 048
     Dates: start: 20200727
  6. FLUNITRAZEPAM [Concomitant]
     Active Substance: FLUNITRAZEPAM
     Route: 048
     Dates: start: 20190422
  7. ESKETAMINE [Suspect]
     Active Substance: ESKETAMINE
     Indication: DEPRESSION
     Dosage: MOST RECENT DOSE 19?DEC?2020
     Dates: start: 20170628
  8. BROMELAIN [Concomitant]
     Active Substance: BROMELAINS
     Route: 048
     Dates: start: 20200727
  9. PROPRANOLOL [Concomitant]
     Active Substance: PROPRANOLOL HYDROCHLORIDE
     Route: 048
     Dates: start: 20190104

REACTIONS (1)
  - Suicide attempt [Recovered/Resolved]

NARRATIVE: CASE EVENT DATE: 20201226
